FAERS Safety Report 8163538-X (Version None)
Quarter: 2012Q1

REPORT INFORMATION
  Report Type: 
  Country: None (occurrence: None)
  Receive Date: 20120224
  Receipt Date: 20120215
  Transmission Date: 20120608
  Serious: Yes (Other)
  Sender: FDA-Public Use
  Company Number: KZ-NOVOPROD-345095

PATIENT
  Age: 48 Year
  Sex: Female

DRUGS (3)
  1. VICTOZA [Suspect]
     Indication: TYPE 2 DIABETES MELLITUS
     Dosage: 0.6 MG, QD
     Route: 065
  2. DIABETON                           /00145301/ [Concomitant]
  3. VICTOZA [Suspect]
     Dosage: 1.2 MG, QD
     Route: 065
     Dates: start: 20120207, end: 20120213

REACTIONS (2)
  - ABDOMINAL PAIN UPPER [None]
  - DIARRHOEA [None]
